FAERS Safety Report 22851411 (Version 2)
Quarter: 2023Q4

REPORT INFORMATION
  Report Type: Spontaneous
  Country: US (occurrence: US)
  Receive Date: 20230822
  Receipt Date: 20231102
  Transmission Date: 20240109
  Serious: No
  Sender: FDA-Public Use
  Company Number: US-LUNDBECK-DKLU3066278

PATIENT
  Sex: Female
  Weight: 63.502 kg

DRUGS (4)
  1. VYEPTI [Suspect]
     Active Substance: EPTINEZUMAB-JJMR
     Indication: Product used for unknown indication
     Route: 041
     Dates: start: 20230126
  2. VYEPTI [Suspect]
     Active Substance: EPTINEZUMAB-JJMR
     Route: 041
     Dates: start: 20230425
  3. DIPHENHYDRAMINE CHEWABLES [Concomitant]
     Indication: Pruritus
     Route: 065
     Dates: start: 20230126
  4. DIPHENHYDRAMINE CHEWABLES [Concomitant]
     Route: 065
     Dates: start: 20230426

REACTIONS (2)
  - Menstruation irregular [Recovered/Resolved]
  - Dairy intolerance [Recovered/Resolved]
